FAERS Safety Report 10334128 (Version 1)
Quarter: 2014Q3

REPORT INFORMATION
  Report Type: Spontaneous
  Country: US (occurrence: None)
  Receive Date: 20140721
  Receipt Date: 20140721
  Transmission Date: 20150326
  Serious: Yes (Disabling)
  Sender: FDA-Public Use
  Company Number: None

PATIENT
  Age: 59 Year
  Sex: Female
  Weight: 81.65 kg

DRUGS (1)
  1. MAGNEVIST [Suspect]
     Active Substance: GADOPENTETATE DIMEGLUMINE
     Indication: ANGIOGRAM
     Dosage: 70 CC ONCE INTO A VEIN
     Route: 042
     Dates: start: 20050714

REACTIONS (5)
  - Neuropathy peripheral [None]
  - Pain in extremity [None]
  - Peripheral ischaemia [None]
  - Restless legs syndrome [None]
  - Injection site extravasation [None]

NARRATIVE: CASE EVENT DATE: 20050714
